FAERS Safety Report 8107769-3 (Version None)
Quarter: 2012Q1

REPORT INFORMATION
  Report Type: 
  Country: None (occurrence: None)
  Receive Date: 20120202
  Receipt Date: 20120127
  Transmission Date: 20120608
  Serious: Yes (Other)
  Sender: FDA-Public Use
  Company Number: JP-JNJFOC-20120200024

PATIENT
  Age: 62 Year
  Sex: Male

DRUGS (30)
  1. DOXORUBICIN HCL [Suspect]
     Dosage: CYCLE 5
     Route: 042
  2. RITUXIMAB [Suspect]
     Indication: DIFFUSE LARGE B-CELL LYMPHOMA
     Route: 065
  3. RITUXIMAB [Suspect]
     Route: 065
  4. CYCLOPHOSPHAMIDE [Suspect]
     Route: 065
  5. VINCRISTINE [Suspect]
     Route: 065
  6. VINCRISTINE [Suspect]
     Route: 065
  7. VINCRISTINE [Suspect]
     Route: 065
  8. CYCLOPHOSPHAMIDE [Suspect]
     Route: 065
  9. CYCLOPHOSPHAMIDE [Suspect]
     Route: 065
  10. PREDNISONE TAB [Suspect]
     Route: 065
  11. PREDNISONE TAB [Suspect]
     Route: 065
  12. VINCRISTINE [Suspect]
     Indication: DIFFUSE LARGE B-CELL LYMPHOMA
     Route: 065
  13. VINCRISTINE [Suspect]
     Route: 065
  14. PREDNISONE TAB [Suspect]
     Route: 065
  15. DOXORUBICIN HCL [Suspect]
     Dosage: CYCLE 2
     Route: 042
  16. DOXORUBICIN HCL [Suspect]
     Dosage: CYCLE 6
     Route: 042
  17. PREDNISONE TAB [Suspect]
     Route: 065
  18. DOXORUBICIN HCL [Suspect]
     Dosage: CYCLE 3
     Route: 042
  19. DOXORUBICIN HCL [Suspect]
     Dosage: CYCLE 4
     Route: 042
  20. RITUXIMAB [Suspect]
     Route: 065
  21. RITUXIMAB [Suspect]
     Route: 065
  22. RITUXIMAB [Suspect]
     Route: 065
  23. VINCRISTINE [Suspect]
     Route: 065
  24. PREDNISONE TAB [Suspect]
     Route: 065
  25. PREDNISONE TAB [Suspect]
     Indication: DIFFUSE LARGE B-CELL LYMPHOMA
     Route: 065
  26. DOXORUBICIN HCL [Suspect]
     Indication: DIFFUSE LARGE B-CELL LYMPHOMA
     Dosage: CYCLE 1
     Route: 042
  27. RITUXIMAB [Suspect]
     Route: 065
  28. CYCLOPHOSPHAMIDE [Suspect]
     Indication: DIFFUSE LARGE B-CELL LYMPHOMA
     Route: 065
  29. CYCLOPHOSPHAMIDE [Suspect]
     Route: 065
  30. CYCLOPHOSPHAMIDE [Suspect]
     Route: 065

REACTIONS (1)
  - GASTRIC CANCER [None]
